FAERS Safety Report 19074622 (Version 1)
Quarter: 2021Q1

REPORT INFORMATION
  Report Type: Spontaneous
  Country: CA (occurrence: CA)
  Receive Date: 20210330
  Receipt Date: 20210330
  Transmission Date: 20210420
  Serious: Yes (Hospitalization, Other)
  Sender: FDA-Public Use
  Company Number: CA-B.BRAUN MEDICAL INC.-2108617

PATIENT
  Age: 80 Year
  Sex: Female
  Weight: 70 kg

DRUGS (19)
  1. ACETAMINOPHEN. [Concomitant]
     Active Substance: ACETAMINOPHEN
  2. CHOLECALCIFEROL [Concomitant]
     Active Substance: CHOLECALCIFEROL
  3. ALENDRONATE [Concomitant]
     Active Substance: ALENDRONATE SODIUM
  4. DOCUSATE SODIUM. [Concomitant]
     Active Substance: DOCUSATE SODIUM
  5. FERROUS SULFATE. [Concomitant]
     Active Substance: FERROUS SULFATE
  6. LAX?A?DAY [Concomitant]
     Active Substance: POLYETHYLENE GLYCOL 3350
  7. LEVOTHYROXINE. [Concomitant]
     Active Substance: LEVOTHYROXINE
  8. OXAZEPAM. [Concomitant]
     Active Substance: OXAZEPAM
  9. LORAZEPAM. [Concomitant]
     Active Substance: LORAZEPAM
  10. NIFEDIPINE. [Concomitant]
     Active Substance: NIFEDIPINE
  11. HEPARIN SODIUM IN DEXTROSE [Suspect]
     Active Substance: HEPARIN SODIUM
     Indication: THROMBOSIS PROPHYLAXIS
     Route: 058
  12. CALCIUM [Concomitant]
     Active Substance: CALCIUM
  13. BROMAZEPAM [Concomitant]
     Active Substance: BROMAZEPAM
  14. HYDROCHLOROQUINE [Concomitant]
     Active Substance: HYDROXYCHLOROQUINE SULFATE
  15. MOMETASONE FUROATE. [Concomitant]
     Active Substance: MOMETASONE FUROATE
  16. FENTANYL. [Concomitant]
     Active Substance: FENTANYL
  17. HYDROMORPHONE [Concomitant]
     Active Substance: HYDROMORPHONE
  18. PANTOPRAZOLE SODIUM. [Concomitant]
     Active Substance: PANTOPRAZOLE SODIUM
  19. TRANDOLAPRIL. [Concomitant]
     Active Substance: TRANDOLAPRIL

REACTIONS (6)
  - Rash pruritic [None]
  - Rash vesicular [None]
  - Umbilical discharge [None]
  - Abdominal pain [None]
  - Injection site reaction [None]
  - Erythema [None]
